FAERS Safety Report 8336996-5 (Version None)
Quarter: 2012Q2

REPORT INFORMATION
  Report Type: 
  Country: None (occurrence: None)
  Receive Date: 20120504
  Receipt Date: 20120423
  Transmission Date: 20120825
  Serious: Yes (Life-Threatening, Hospitalization, Other)
  Sender: FDA-Public Use
  Company Number: IE-MEDIMMUNE-MEDI-0014051

PATIENT
  Sex: Female
  Weight: 2.7 kg

DRUGS (4)
  1. 6 IN 1 INJECTION (UNSPECIFIED) [Concomitant]
     Dates: start: 20111109
  2. KAPSOVIT [Concomitant]
  3. FERROUS SULFATE TAB [Concomitant]
  4. SYNAGIS [Suspect]
     Route: 030
     Dates: end: 20111104

REACTIONS (2)
  - APNOEA [None]
  - OXYGEN SATURATION DECREASED [None]
